FAERS Safety Report 9324463 (Version 1)
Quarter: 2013Q2

REPORT INFORMATION
  Report Type: Spontaneous
  Country: US (occurrence: None)
  Receive Date: 20130531
  Receipt Date: 20130531
  Transmission Date: 20140414
  Serious: Yes (Death, Life-Threatening)
  Sender: FDA-Public Use
  Company Number: None

PATIENT
  Age: 59 Year
  Sex: Male
  Weight: 89.2 kg

DRUGS (8)
  1. POMALIDOMIDE [Suspect]
     Indication: AMYLOIDOSIS
     Dates: start: 20130313, end: 20130523
  2. DEXAMETHAZONE [Suspect]
     Indication: AMYLOIDOSIS
     Dates: start: 20130316, end: 20130523
  3. BORTEZOMIB [Concomitant]
  4. ONDANSETRO [Concomitant]
  5. LASIX [Concomitant]
  6. AVDODART [Concomitant]
  7. AMITRIPTYLINE [Concomitant]
  8. ZOLPIDEM [Concomitant]

REACTIONS (7)
  - Asthenia [None]
  - Dizziness [None]
  - Fall [None]
  - Unresponsive to stimuli [None]
  - Myocardial infarction [None]
  - Pulmonary embolism [None]
  - Arrhythmia [None]
